FAERS Safety Report 7049851-8 (Version None)
Quarter: 2010Q4

REPORT INFORMATION
  Report Type: 
  Country: None (occurrence: None)
  Receive Date: 20101012
  Receipt Date: 20101006
  Transmission Date: 20110411
  Serious: Yes (Hospitalization)
  Sender: FDA-Public Use
  Company Number: DSA_43935_2010

PATIENT
  Sex: Female

DRUGS (4)
  1. XENAZINE [Suspect]
     Indication: CHOREA
     Dosage: (12.5 MG QD ORAL), (12.5 MG BID ORAL), (12.5 MG EVERY MORNING/ 25 MG EVERY NIGHT ORAL), (25 MG BI
     Route: 048
     Dates: start: 20100716, end: 20100701
  2. XENAZINE [Suspect]
     Indication: CHOREA
     Dosage: (12.5 MG QD ORAL), (12.5 MG BID ORAL), (12.5 MG EVERY MORNING/ 25 MG EVERY NIGHT ORAL), (25 MG BI
     Route: 048
     Dates: start: 20100101, end: 20100715
  3. XENAZINE [Suspect]
     Indication: CHOREA
     Dosage: (12.5 MG QD ORAL), (12.5 MG BID ORAL), (12.5 MG EVERY MORNING/ 25 MG EVERY NIGHT ORAL), (25 MG BI
     Route: 048
     Dates: start: 20100701, end: 20100808
  4. XENAZINE [Suspect]
     Indication: CHOREA
     Dosage: (12.5 MG QD ORAL), (12.5 MG BID ORAL), (12.5 MG EVERY MORNING/ 25 MG EVERY NIGHT ORAL), (25 MG BI
     Route: 048
     Dates: start: 20100401

REACTIONS (3)
  - ERYTHEMA MULTIFORME [None]
  - LIP SWELLING [None]
  - PHARYNGEAL OEDEMA [None]
